FAERS Safety Report 20098006 (Version 1)
Quarter: 2021Q4

REPORT INFORMATION
  Report Type: Report from Study
  Country: US (occurrence: US)
  Receive Date: 20211122
  Receipt Date: 20211122
  Transmission Date: 20220303
  Serious: Yes (Hospitalization, Other)
  Sender: FDA-Public Use
  Company Number: US-BAYER-2021-193322

PATIENT
  Age: 53 Year
  Sex: Female

DRUGS (4)
  1. STIVARGA [Suspect]
     Active Substance: REGORAFENIB
     Indication: Colon cancer metastatic
     Dosage: DAILY DOSE 80 MG
     Route: 048
     Dates: start: 20210810
  2. STIVARGA [Suspect]
     Active Substance: REGORAFENIB
     Indication: Metastases to liver
  3. STIVARGA [Suspect]
     Active Substance: REGORAFENIB
     Indication: Metastases to lymph nodes
  4. OMEPRAZOLE [Concomitant]
     Active Substance: OMEPRAZOLE

REACTIONS (15)
  - Colon cancer metastatic [None]
  - Sepsis [Recovered/Resolved]
  - Blood pressure inadequately controlled [None]
  - Pyrexia [None]
  - Fatigue [None]
  - Central venous catheterisation [None]
  - Laboratory test abnormal [Unknown]
  - Flatulence [Unknown]
  - Insomnia [Unknown]
  - Thyroid hormones decreased [Unknown]
  - Abdominal pain upper [Unknown]
  - Feeding disorder [Unknown]
  - Weight decreased [Unknown]
  - Off label use [None]
  - Blister [None]

NARRATIVE: CASE EVENT DATE: 20210810
